FAERS Safety Report 7488393-2 (Version None)
Quarter: 2011Q2

REPORT INFORMATION
  Report Type: 
  Country: None (occurrence: None)
  Receive Date: 20110518
  Receipt Date: 20110509
  Transmission Date: 20111010
  Serious: Yes (Other)
  Sender: FDA-Public Use
  Company Number: GR-SANOFI-AVENTIS-2011SA029322

PATIENT
  Age: 64 Year
  Sex: Female

DRUGS (6)
  1. SINTROM [Concomitant]
  2. TENORMIN [Concomitant]
  3. PLAVIX [Suspect]
     Route: 048
     Dates: start: 20101001
  4. ACCURETIC [Concomitant]
  5. MEVACOR [Concomitant]
  6. LOFTYL [Concomitant]

REACTIONS (2)
  - INTERNATIONAL NORMALISED RATIO INCREASED [None]
  - RHINORRHOEA [None]
